FAERS Safety Report 7272498-5 (Version None)
Quarter: 2011Q1

REPORT INFORMATION
  Report Type: 
  Country: None (occurrence: None)
  Receive Date: 20110203
  Receipt Date: 20110126
  Transmission Date: 20110831
  Serious: Yes (Other)
  Sender: FDA-Public Use
  Company Number: DE-ROCHE-754359

PATIENT
  Sex: Male

DRUGS (2)
  1. MARCUMAR [Interacting]
     Route: 065
  2. RIVOTRIL [Suspect]
     Route: 065

REACTIONS (3)
  - PROTHROMBIN TIME PROLONGED [None]
  - DRUG EFFECT INCREASED [None]
  - DRUG INTERACTION [None]
